FAERS Safety Report 5396807-7 (Version None)
Quarter: 2007Q3

REPORT INFORMATION
  Report Type: 
  Country: None (occurrence: None)
  Receive Date: 20070725
  Receipt Date: 20060911
  Transmission Date: 20080115
  Serious: No
  Sender: FDA-Public Use
  Company Number: US-AMGEN-KDL193245

PATIENT
  Sex: Male
  Weight: 68.1 kg

DRUGS (4)
  1. PROCRIT [Suspect]
     Indication: ANAEMIA
     Route: 058
     Dates: start: 20060824
  2. ATENOLOL [Concomitant]
  3. UNSPECIFIED MEDICATION [Concomitant]
  4. DOXAZOSIN MESYLATE [Concomitant]

REACTIONS (5)
  - ASTHENIA [None]
  - DIZZINESS [None]
  - FATIGUE [None]
  - HYPOAESTHESIA [None]
  - SOMNOLENCE [None]
